FAERS Safety Report 5565354-1 (Version None)
Quarter: 2007Q4

REPORT INFORMATION
  Report Type: 
  Country: None (occurrence: None)
  Receive Date: 20071213
  Receipt Date: 20071207
  Transmission Date: 20080405
  Serious: Yes (Other)
  Sender: FDA-Public Use
  Company Number: FABR-12312

PATIENT
  Age: 46 Year
  Weight: 126.1 kg

DRUGS (7)
  1. FABRAZYME [Suspect]
     Indication: FABRY'S DISEASE
  2. NITROGLYCERIN TIME RELEASE [Concomitant]
  3. NITROGLCYERIN [Concomitant]
  4. IBUPROFEN [Concomitant]
  5. VICODIN [Concomitant]
  6. TYLENOL [Concomitant]
  7. CLARITIN [Concomitant]

REACTIONS (4)
  - HYPOTENSION [None]
  - PAIN IN EXTREMITY [None]
  - THROMBOSIS [None]
  - TINNITUS [None]
